FAERS Safety Report 15188311 (Version 1)
Quarter: 2018Q3

REPORT INFORMATION
  Report Type: Report from Study
  Country: JP (occurrence: JP)
  Receive Date: 20180724
  Receipt Date: 20180724
  Transmission Date: 20181010
  Serious: Yes (Other)
  Sender: FDA-Public Use
  Company Number: JP-TEVA-2018-JP-929552

PATIENT
  Age: 76 Year
  Sex: Male

DRUGS (3)
  1. PEGYLATED?GRANULOCYTE?COLONY STIMULATING FACTOR [Concomitant]
     Indication: PROPHYLAXIS
     Dosage: ON DAY 2 EVERY 3 WEEKS
     Route: 058
  2. RAMUCIRUMAB [Suspect]
     Active Substance: RAMUCIRUMAB
     Indication: NON-SMALL CELL LUNG CANCER
     Dosage: ON DAY 1 EVERY 3 WEEKS
     Route: 042
  3. DOCETAXEL. [Suspect]
     Active Substance: DOCETAXEL
     Indication: NON-SMALL CELL LUNG CANCER
     Dosage: ON DAY 1 EVERY 3 WEEKS
     Route: 042

REACTIONS (6)
  - Decreased appetite [Unknown]
  - Palmar-plantar erythrodysaesthesia syndrome [Unknown]
  - Anaemia [Unknown]
  - Malaise [Unknown]
  - Thrombocytopenia [Unknown]
  - Mucosal inflammation [Unknown]
